FAERS Safety Report 18218298 (Version 1)
Quarter: 2020Q3

REPORT INFORMATION
  Report Type: Spontaneous
  Country: US (occurrence: US)
  Receive Date: 20200901
  Receipt Date: 20200901
  Transmission Date: 20201103
  Serious: Yes (Other)
  Sender: FDA-Public Use
  Company Number: US-PFIZER INC-2020336054

PATIENT
  Age: 75 Year

DRUGS (1)
  1. DEPO?ESTRADIOL [Suspect]
     Active Substance: ESTRADIOL CYPIONATE
     Dosage: UNK, MONTHLY

REACTIONS (5)
  - Localised infection [Unknown]
  - Mood swings [Unknown]
  - Fall [Unknown]
  - Bone disorder [Unknown]
  - Hot flush [Unknown]
